FAERS Safety Report 6425437-0 (Version None)
Quarter: 2009Q4

REPORT INFORMATION
  Report Type: 
  Country: None (occurrence: None)
  Receive Date: 20091103
  Receipt Date: 20091023
  Transmission Date: 20100525
  Serious: Yes (Other)
  Sender: FDA-Public Use
  Company Number: JP-PFIZER INC-2009289443

PATIENT
  Age: 55 Year
  Sex: Female
  Weight: 40 kg

DRUGS (1)
  1. VFEND [Suspect]
     Indication: ASPERGILLOSIS
     Dosage: 25 MG, 2X/DAY
     Route: 048
     Dates: start: 20090801

REACTIONS (3)
  - ALOPECIA [None]
  - HAEMOPTYSIS [None]
  - PHOTOPSIA [None]
